FAERS Safety Report 11219112 (Version 2)
Quarter: 2016Q3

REPORT INFORMATION
  Report Type: Spontaneous
  Country: GB (occurrence: GB)
  Receive Date: 20150625
  Receipt Date: 20160916
  Transmission Date: 20161109
  Serious: Yes (Death, Life-Threatening, Other)
  Sender: FDA-Public Use
  Company Number: GB-ASTRAZENECA-2015SE59781

PATIENT
  Age: 69 Year
  Sex: Male
  Weight: 56 kg

DRUGS (8)
  1. TICAGRELOR [Suspect]
     Active Substance: TICAGRELOR
     Indication: VASCULAR STENT OCCLUSION
     Route: 048
     Dates: start: 20120323, end: 20150310
  2. ISOSORBIDE. [Concomitant]
     Active Substance: ISOSORBIDE
  3. CLOPIDOGREL [Concomitant]
     Active Substance: CLOPIDOGREL BISULFATE
  4. BENDROFLUMETHIAZIDE [Concomitant]
     Active Substance: BENDROFLUMETHIAZIDE
  5. ATENOLOL. [Concomitant]
     Active Substance: ATENOLOL
  6. SIMVASTATIN. [Concomitant]
     Active Substance: SIMVASTATIN
  7. ASPIRIN. [Concomitant]
     Active Substance: ASPIRIN
  8. TICAGRELOR [Suspect]
     Active Substance: TICAGRELOR
     Indication: VASCULAR STENT OCCLUSION
     Route: 048
     Dates: start: 2015

REACTIONS (3)
  - Haemoglobin decreased [Unknown]
  - Tracheal haemorrhage [Fatal]
  - Pulmonary haemorrhage [Fatal]

NARRATIVE: CASE EVENT DATE: 20150328
